FAERS Safety Report 9451106 (Version 1)
Quarter: 2013Q3

REPORT INFORMATION
  Report Type: Report from Study
  Country: TR (occurrence: TR)
  Receive Date: 20130809
  Receipt Date: 20130809
  Transmission Date: 20140515
  Serious: Yes (Death)
  Sender: FDA-Public Use
  Company Number: TR-US-EMD SERONO, INC.-7228606

PATIENT
  Age: 62 Year
  Sex: Female

DRUGS (4)
  1. SAIZEN [Suspect]
     Indication: GROWTH HORMONE DEFICIENCY
     Route: 058
     Dates: start: 2009, end: 201303
  2. ACETYLSALICYLIC ACID [Suspect]
     Indication: ANTICOAGULANT THERAPY
     Route: 048
     Dates: start: 2010, end: 2013
  3. LEVOTIRON [Suspect]
     Indication: HYPOPITUITARISM
     Route: 048
     Dates: start: 2010, end: 2013
  4. PREDNOL [Suspect]
     Indication: HYPOPITUITARISM
     Route: 048
     Dates: start: 2010, end: 2013

REACTIONS (1)
  - Cardiac failure [Fatal]
